FAERS Safety Report 9613257 (Version 4)
Quarter: 2018Q3

REPORT INFORMATION
  Report Type: Spontaneous
  Country: JP (occurrence: JP)
  Receive Date: 20131010
  Receipt Date: 20180827
  Transmission Date: 20181010
  Serious: Yes (Life-Threatening, Hospitalization)
  Sender: FDA-Public Use
  Company Number: JP-BAYER-2013-122452

PATIENT
  Age: 44 Year
  Sex: Female
  Weight: 41 kg

DRUGS (4)
  1. LUTEONIN [Concomitant]
     Indication: PROPHYLAXIS
     Dosage: 15 MG, UNK
     Route: 048
     Dates: start: 20120607, end: 20120625
  2. BAYASPIRIN 100 MG [Suspect]
     Active Substance: ASPIRIN
     Indication: ANTICOAGULANT THERAPY
     Dosage: DAILY DOSE 100 MG
     Route: 048
     Dates: start: 20110615, end: 20120706
  3. SHINLUCK [Concomitant]
     Active Substance: SODIUM PICOSULFATE
     Indication: CONSTIPATION
     Dosage: UNK
     Route: 048
     Dates: start: 20120412
  4. LUTEONIN [Concomitant]
     Indication: PROPHYLAXIS
     Dosage: 50 MG, UNK
     Route: 017
     Dates: start: 20120625, end: 20120725

REACTIONS (7)
  - Premature delivery [None]
  - Shock [None]
  - Intra-abdominal haemorrhage [None]
  - Gestational hypertension [None]
  - Maternal exposure during pregnancy [None]
  - Uterine haemorrhage [Recovered/Resolved]
  - Placenta praevia [None]

NARRATIVE: CASE EVENT DATE: 20120725
